FAERS Safety Report 4635619-6 (Version None)
Quarter: 2005Q2

REPORT INFORMATION
  Report Type: 
  Country: None (occurrence: None)
  Receive Date: 20050413
  Receipt Date: 20050401
  Transmission Date: 20051028
  Serious: Yes (Hospitalization, Other)
  Sender: FDA-Public Use
  Company Number: KII-2005-0015794

PATIENT
  Age: 20 Year
  Sex: Male
  Weight: 63.6 kg

DRUGS (4)
  1. MORPHINE SULFATE [Suspect]
  2. BENZODIAZEPINE DERIVATIVES [Suspect]
     Dosage: ORAL
     Route: 048
  3. ETHANOL(ETHANOL) [Suspect]
  4. ACETAMINOPHEN [Suspect]

REACTIONS (16)
  - ALANINE AMINOTRANSFERASE INCREASED [None]
  - ASPARTATE AMINOTRANSFERASE INCREASED [None]
  - BLOOD CALCIUM DECREASED [None]
  - BLOOD CREATININE INCREASED [None]
  - BLOOD PRESSURE DECREASED [None]
  - BRADYCARDIA [None]
  - CHEST X-RAY ABNORMAL [None]
  - COMA [None]
  - DEAFNESS [None]
  - FLUID OVERLOAD [None]
  - HEADACHE [None]
  - HEART RATE INCREASED [None]
  - MIOSIS [None]
  - MULTIPLE DRUG OVERDOSE [None]
  - RHABDOMYOLYSIS [None]
  - WHITE BLOOD CELL COUNT INCREASED [None]
